FAERS Safety Report 7537760-7 (Version None)
Quarter: 2011Q2

REPORT INFORMATION
  Report Type: 
  Country: None (occurrence: None)
  Receive Date: 20110609
  Receipt Date: 20110603
  Transmission Date: 20111010
  Serious: Yes (Hospitalization, Other)
  Sender: FDA-Public Use
  Company Number: CA-ABBOTT-11P-028-0730545-00

PATIENT
  Sex: Female
  Weight: 54.48 kg

DRUGS (4)
  1. HUMIRA [Suspect]
     Indication: CROHN'S DISEASE
     Route: 058
     Dates: start: 20100126, end: 20101101
  2. CODEINE SULFATE [Concomitant]
     Indication: PAIN
     Route: 048
  3. PANTOPRAZOLE SODIUM [Concomitant]
     Indication: GASTROOESOPHAGEAL REFLUX DISEASE
     Route: 048
  4. MORPHINE [Concomitant]
     Indication: PAIN
     Route: 048

REACTIONS (6)
  - CHOLELITHIASIS [None]
  - LYMPHOCELE [None]
  - HYPOPHAGIA [None]
  - FLUID INTAKE REDUCED [None]
  - GALLBLADDER DISORDER [None]
  - ARTHRALGIA [None]
